FAERS Safety Report 5891822-9 (Version None)
Quarter: 2008Q3

REPORT INFORMATION
  Report Type: 
  Country: None (occurrence: None)
  Receive Date: 20080922
  Receipt Date: 20080910
  Transmission Date: 20090109
  Serious: Yes (Other)
  Sender: FDA-Public Use
  Company Number: US-PFIZER INC-2008051192

PATIENT
  Sex: Male

DRUGS (20)
  1. XANAX [Suspect]
     Indication: DEPRESSION
     Dates: start: 20031001, end: 20070101
  2. XANAX [Suspect]
     Indication: ANXIETY
  3. XANAX [Suspect]
     Indication: SLEEP DISORDER
  4. ZOLOFT [Suspect]
     Dates: start: 20031001
  5. NEURONTIN [Suspect]
     Indication: AMNESIA
     Dates: start: 20031001
  6. NEURONTIN [Suspect]
     Indication: RESTLESS LEGS SYNDROME
  7. TRAZODONE HCL [Suspect]
     Dates: start: 20031001
  8. SEROQUEL [Suspect]
     Dates: start: 20031001, end: 20070101
  9. WELLBUTRIN [Suspect]
     Dates: start: 20031001, end: 20070101
  10. LEXAPRO [Suspect]
     Dates: start: 20031001, end: 20070101
  11. RESTORIL [Suspect]
     Dates: start: 20031001, end: 20070101
  12. CYMBALTA [Suspect]
     Dates: start: 20031001, end: 20070101
  13. LISINOPRIL [Concomitant]
     Indication: BLOOD PRESSURE
  14. FENOFIBRATE [Concomitant]
     Indication: BLOOD TRIGLYCERIDES
  15. FENOFIBRATE [Concomitant]
     Indication: BLOOD CHOLESTEROL
  16. LEVOTHYROXINE SODIUM [Concomitant]
     Indication: THYROID DISORDER
  17. AMBIEN [Concomitant]
     Indication: SLEEP DISORDER
  18. HYDROCHLOROTHIAZIDE [Concomitant]
  19. HYDROCODONE BITARTRATE + ACETAMINOPHEN [Concomitant]
     Indication: BACK PAIN
  20. CARISOPRODOL [Concomitant]
     Indication: BACK PAIN

REACTIONS (35)
  - AMNESIA [None]
  - ANGER [None]
  - ANXIETY [None]
  - ATTENTION DEFICIT/HYPERACTIVITY DISORDER [None]
  - BACK PAIN [None]
  - BLOOD CHOLESTEROL INCREASED [None]
  - BLOOD TRIGLYCERIDES ABNORMAL [None]
  - BRUXISM [None]
  - CONSTIPATION [None]
  - CONVULSION [None]
  - DEPRESSION [None]
  - FEELING ABNORMAL [None]
  - HALLUCINATION [None]
  - HEADACHE [None]
  - HYPERHIDROSIS [None]
  - HYPERTENSION [None]
  - INSOMNIA [None]
  - MENTAL DISORDER [None]
  - NIGHTMARE [None]
  - PAIN [None]
  - PANCREATITIS [None]
  - PANIC ATTACK [None]
  - RENAL FAILURE [None]
  - RESTLESS LEGS SYNDROME [None]
  - ROAD TRAFFIC ACCIDENT [None]
  - SCREAMING [None]
  - SEDATION [None]
  - SLEEP APNOEA SYNDROME [None]
  - SUICIDAL IDEATION [None]
  - SUICIDE ATTEMPT [None]
  - TARDIVE DYSKINESIA [None]
  - THYROID DISORDER [None]
  - VOMITING [None]
  - WEIGHT DECREASED [None]
  - WITHDRAWAL SYNDROME [None]
